FAERS Safety Report 8849737 (Version 1)
Quarter: 2012Q4

REPORT INFORMATION
  Report Type: 
  Country: US (occurrence: US)
  Receive Date: 20121019
  Receipt Date: 20121019
  Transmission Date: 20130627
  Serious: No
  Sender: FDA-Public Use
  Company Number: US-TEVA-365399USA

PATIENT
  Age: 53 Year
  Sex: Female

DRUGS (1)
  1. COPAXONE [Suspect]
     Indication: MULTIPLE SCLEROSIS

REACTIONS (6)
  - Insomnia [Unknown]
  - Back pain [Unknown]
  - Musculoskeletal discomfort [Unknown]
  - Influenza [Unknown]
  - Pain [Unknown]
  - Mobility decreased [Unknown]
